FAERS Safety Report 18810229 (Version 1)
Quarter: 2021Q1

REPORT INFORMATION
  Report Type: Spontaneous
  Country: US (occurrence: US)
  Receive Date: 20210130
  Receipt Date: 20210130
  Transmission Date: 20210419
  Serious: Yes (Other)
  Sender: FDA-Public Use
  Company Number: US-ABBVIE-21K-163-3746954-00

PATIENT
  Sex: Male

DRUGS (1)
  1. CREON [Suspect]
     Active Substance: PANCRELIPASE AMYLASE\PANCRELIPASE LIPASE\PANCRELIPASE PROTEASE
     Indication: PANCREATIC CARCINOMA
     Route: 048

REACTIONS (6)
  - Asthenia [Unknown]
  - Dyspepsia [Unknown]
  - Blood iron decreased [Unknown]
  - Pancreaticoduodenectomy [Unknown]
  - Off label use [Unknown]
  - Diarrhoea [Unknown]
